FAERS Safety Report 24593021 (Version 1)
Quarter: 2024Q4

REPORT INFORMATION
  Report Type: Spontaneous
  Country: US (occurrence: US)
  Receive Date: 20241108
  Receipt Date: 20241108
  Transmission Date: 20250114
  Serious: Yes (Other)
  Sender: PFIZER
  Company Number: US-PFIZER INC-PV202400143380

PATIENT
  Age: 37 Year
  Sex: Male

DRUGS (2)
  1. KETAMINE HYDROCHLORIDE [Suspect]
     Active Substance: KETAMINE HYDROCHLORIDE
     Indication: Major depression
     Dosage: 0.5 MG/KG OR 1 MG/KG WERE GIVEN AT A FREQUENCY OF TWICE A WEEK FOR 4 WEEKS
     Route: 030
  2. KETAMINE HYDROCHLORIDE [Suspect]
     Active Substance: KETAMINE HYDROCHLORIDE
     Indication: Depression suicidal
     Dosage: ONCE A WEEK FOR MAINTENANCE
     Route: 030

REACTIONS (3)
  - Hypoxia [Unknown]
  - Off label use [Unknown]
  - Drug effective for unapproved indication [Unknown]
